FAERS Safety Report 19307077 (Version 3)
Quarter: 2021Q3

REPORT INFORMATION
  Report Type: Spontaneous
  Country: US (occurrence: US)
  Receive Date: 20210526
  Receipt Date: 20210723
  Transmission Date: 20211014
  Serious: Yes (Other)
  Sender: FDA-Public Use
  Company Number: US-PFIZER INC-2021241491

PATIENT
  Age: 57 Year
  Sex: Female
  Weight: 91.16 kg

DRUGS (1)
  1. LYRICA [Suspect]
     Active Substance: PREGABALIN
     Indication: FIBROMYALGIA
     Dosage: UNK, DAILY

REACTIONS (3)
  - Neuropathy peripheral [Not Recovered/Not Resolved]
  - Influenza [Unknown]
  - Withdrawal syndrome [Unknown]
